FAERS Safety Report 10085938 (Version 1)
Quarter: 2014Q2

REPORT INFORMATION
  Report Type: Spontaneous
  Country: JP (occurrence: None)
  Receive Date: 20140416
  Receipt Date: 20140416
  Transmission Date: 20141212
  Serious: Yes (Death)
  Sender: FDA-Public Use
  Company Number: FK201401304

PATIENT
  Age: 67 Year
  Sex: Female

DRUGS (11)
  1. DOXORUBICIN (MANUFACTURER UNKNOWN) (DOXORUBICIN HDYROCHLORIDE) (DOXORUBICIN HYDROCHLORIDE) [Suspect]
     Indication: ADULT T-CELL LYMPHOMA/LEUKAEMIA
  2. IFOSFAMIDE (MANUFACTURER UNKNOWN) (IFOSFAMIDE) (IFOSFAMIDE) [Suspect]
     Indication: ADULT T-CELL LYMPHOMA/LEUKAEMIA
  3. MITOXANTRONE (MANUFACTURER UNKNOWN) (MITOXANTRONE) (MIXTOXANTRONE) [Suspect]
     Indication: ADULT T-CELL LYMPHOMA/LEUKAEMIA
  4. ETOPOSIDE (MANUFACTURER UNKNOWN) (ETOPOSIDE) (ETOPOSIDE) [Suspect]
     Indication: ADULT T-CELL LYMPHOMA/LEUKAEMIA
  5. METHYLPREDNISOLONE (MANUFACTURER UNKNOWN) (METHYLPREDNISOLONE SODIUM SUCCINATE) (METHYLPREDNISOLONE SODIUM SUCCINATE) [Suspect]
     Indication: ADULT T-CELL LYMPHOMA/LEUKAEMIA
  6. CYTARABINE (MANUFACTURER UNKNOWN) (CYTARABINE (CYTARABINE) [Suspect]
     Indication: ADULT T-CELL LYMPHOMA/LEUKAEMIA
  7. CISPLATIN (MANUFACTURER UNKNOWN) (CISPLATIN) (CISPLATIN) [Suspect]
     Indication: ADULT T-CELL LYMPHOMA/LEUKAEMIA
  8. CYCLOPHOSPHAMIDE (MANUFACTURER UNKNOWN) (CYCLOPHOSPHAMIDE) (CYCLOPHOSPHAMIDE) [Suspect]
     Indication: ADULT T-CELL LYMPHOMA/LEUKAEMIA
  9. MESNA (MANUFACTURER UNKNOWN) (MESNA) (MESNA) [Suspect]
     Indication: ADULT T-CELL LYMPHOMA/LEUKAEMIA
  10. VINCRISTINE (VINCRISTINE) (VINCRISTINE) [Suspect]
     Indication: ADULT T-CELL LYMPHOMA/LEUKAEMIA
  11. PREDNISONE (PREDNISONE) (PREDNISONE) [Suspect]
     Indication: ADULT T-CELL LYMPHOMA/LEUKAEMIA

REACTIONS (9)
  - Drug level increased [None]
  - General physical health deterioration [None]
  - Drug resistance [None]
  - Local swelling [None]
  - Lymphadenopathy [None]
  - Blood lactate dehydrogenase increased [None]
  - C-reactive protein increased [None]
  - Dyspnoea [None]
  - Obstructive airways disorder [None]
